FAERS Safety Report 6994081-9 (Version None)
Quarter: 2010Q3

REPORT INFORMATION
  Report Type: 
  Country: None (occurrence: None)
  Receive Date: 20100917
  Receipt Date: 20070730
  Transmission Date: 20110219
  Serious: Yes (Other)
  Sender: FDA-Public Use
  Company Number: US-ASTRAZENECA-2006UW24528

PATIENT
  Age: 13972 Day
  Sex: Male
  Weight: 70.3 kg

DRUGS (7)
  1. SEROQUEL [Suspect]
     Indication: AFFECTIVE DISORDER
     Route: 048
     Dates: start: 20030101, end: 20050101
  2. SEROQUEL [Suspect]
     Dosage: 50-100 MG
     Route: 048
     Dates: start: 20040101
  3. ZYPREXA [Suspect]
  4. MS CONTIN [Concomitant]
     Dosage: 60 MG ONE TO TWO EVERY TWELVE HOURS
     Dates: start: 20010101
  5. BACLOFEN [Concomitant]
     Dates: start: 20030101
  6. ELAVIL [Concomitant]
     Route: 048
     Dates: start: 20040101
  7. DEPAKOTE [Concomitant]
     Route: 048
     Dates: start: 20040101

REACTIONS (3)
  - DIABETES MELLITUS [None]
  - PANCREATITIS [None]
  - TYPE 2 DIABETES MELLITUS [None]
